FAERS Safety Report 5766786-9 (Version None)
Quarter: 2008Q2

REPORT INFORMATION
  Report Type: 
  Country: None (occurrence: None)
  Receive Date: 20080612
  Receipt Date: 20080603
  Transmission Date: 20081010
  Serious: Yes (Death, Hospitalization)
  Sender: FDA-Public Use
  Company Number: US-ROCHE-568127

PATIENT
  Age: 90 Year
  Sex: Female

DRUGS (2)
  1. BONIVA [Suspect]
     Indication: OSTEOPOROSIS
     Route: 065
  2. SEVERAL UNKNOWN COMEDICATIONS [Concomitant]
     Dosage: DRUG; MULITPLE CARDIAC MEDICATIONS.

REACTIONS (4)
  - DEATH [None]
  - FALL [None]
  - PELVIC FRACTURE [None]
  - WRIST FRACTURE [None]
